FAERS Safety Report 11922398 (Version 1)
Quarter: 2016Q1

REPORT INFORMATION
  Report Type: Spontaneous
  Country: FR (occurrence: FR)
  Receive Date: 20160115
  Receipt Date: 20160115
  Transmission Date: 20160526
  Serious: Yes (Hospitalization, Other)
  Sender: FDA-Public Use
  Company Number: FR-ASTRAZENECA-2016SE02687

PATIENT
  Age: 949 Month
  Sex: Female

DRUGS (11)
  1. NORSET [Concomitant]
     Active Substance: MIRTAZAPINE
     Indication: DEPRESSION
     Route: 048
     Dates: start: 201501
  2. MABTHERA [Suspect]
     Active Substance: RITUXIMAB
     Route: 040
     Dates: start: 20150810, end: 20150810
  3. MABTHERA [Suspect]
     Active Substance: RITUXIMAB
     Route: 040
     Dates: start: 20150824, end: 20150824
  4. ARAVA [Concomitant]
     Active Substance: LEFLUNOMIDE
     Indication: RHEUMATOID ARTHRITIS
  5. TRAMADOL. [Suspect]
     Active Substance: TRAMADOL
     Dosage: 1 TO 3 TABLETS PER DAY
     Route: 048
     Dates: start: 20151012, end: 20151029
  6. TRAMADOL. [Suspect]
     Active Substance: TRAMADOL
     Route: 048
     Dates: start: 20151204, end: 20151213
  7. MONOTILDIEM [Concomitant]
     Active Substance: DILTIAZEM
     Indication: ESSENTIAL HYPERTENSION
  8. TRIATEC [Concomitant]
     Active Substance: RAMIPRIL
     Indication: ESSENTIAL HYPERTENSION
  9. IINEXIUM [Suspect]
     Active Substance: ESOMEPRAZOLE
     Route: 048
     Dates: start: 20150815, end: 20151213
  10. STILNOX [Suspect]
     Active Substance: ZOLPIDEM TARTRATE
     Dosage: 0.5 TO 1 TABLET PER DAY
     Route: 048
     Dates: start: 20150815, end: 20151012
  11. STILNOX [Suspect]
     Active Substance: ZOLPIDEM TARTRATE
     Route: 048
     Dates: start: 20151204, end: 20151213

REACTIONS (3)
  - Staphylococcal infection [Unknown]
  - Infection [Recovering/Resolving]
  - Agranulocytosis [Recovered/Resolved]

NARRATIVE: CASE EVENT DATE: 201510
